FAERS Safety Report 10203787 (Version 1)
Quarter: 2014Q2

REPORT INFORMATION
  Report Type: Spontaneous
  Country: US (occurrence: US)
  Receive Date: 20140529
  Receipt Date: 20140529
  Transmission Date: 20141212
  Serious: Yes (Hospitalization)
  Sender: FDA-Public Use
  Company Number: US-BAYER-2014-079861

PATIENT
  Age: 30 Year
  Sex: Female
  Weight: 63.49 kg

DRUGS (18)
  1. YASMIN [Suspect]
     Dosage: UNK UNK, QD
  2. EFFEXOR [Concomitant]
     Dosage: 75 MG, QD
  3. XANAX [Concomitant]
     Dosage: 0.5 MG, QD
  4. MIDRIN [Concomitant]
     Dosage: UNK UNK, PRN
  5. PREVACID [Concomitant]
     Dosage: 40 MG, BID
  6. VICOPROFEN [Concomitant]
     Dosage: UNK UNK, PRN
  7. MOTRIN [Concomitant]
     Dosage: 600 MG, TID
     Route: 048
  8. LITHIUM CARBONATE [Concomitant]
     Dosage: 300 MG, TID
  9. VERAPAMIL HYDROCHLORIDE [Concomitant]
     Dosage: 80 MG, BID
  10. ALLEGRA [Concomitant]
     Dosage: 80 MG, QD
  11. ZOMIG [Concomitant]
     Dosage: UNK UNK, PRN
  12. LOPRESSOR [Concomitant]
  13. TYLENOL [PARACETAMOL] [Concomitant]
  14. CLARITIN [Concomitant]
  15. PHENERGAN [PROMETHAZINE] [Concomitant]
  16. VERAPAMIL [Concomitant]
  17. PRILOSEC [Concomitant]
  18. VICODIN [Concomitant]

REACTIONS (1)
  - Pulmonary embolism [Recovered/Resolved]
